FAERS Safety Report 21976860 (Version 1)
Quarter: 2023Q1

REPORT INFORMATION
  Report Type: Spontaneous
  Country: CN (occurrence: CN)
  Receive Date: 20230210
  Receipt Date: 20230210
  Transmission Date: 20230417
  Serious: Yes (Other)
  Sender: FDA-Public Use
  Company Number: None

PATIENT
  Age: 45 Year
  Sex: Female
  Weight: 64 kg

DRUGS (6)
  1. CYCLOPHOSPHAMIDE [Suspect]
     Active Substance: CYCLOPHOSPHAMIDE
     Indication: Chemotherapy
     Dosage: DRUG STARTED AT 8:32, 1 G, QD, DILUTED WITH 0.9% SODIUM CHLORIDE (100 ML)
     Route: 041
     Dates: start: 20221214
  2. CYCLOPHOSPHAMIDE [Suspect]
     Active Substance: CYCLOPHOSPHAMIDE
     Indication: Breast cancer female
  3. SODIUM CHLORIDE [Suspect]
     Active Substance: SODIUM CHLORIDE
     Indication: Medication dilution
     Dosage: DRUG STARTED AT 8:32, 100 ML, QD, USED TO DILUTE CYCLOPHOSPHAMIDE (1 G), CONCENTRATION: 0.9%, DOSAGE
     Route: 041
     Dates: start: 20221214
  4. DEXTROSE [Suspect]
     Active Substance: DEXTROSE
     Indication: Medication dilution
     Dosage: DRUG STARTED AT 8:32, 100 ML, QD, USED TO DILUTE PIRARUBICIN (70 MG), CONCENTRATION: 5 %, DOSAGE FOR
     Route: 041
     Dates: start: 20221214
  5. PIRARUBICIN HYDROCHLORIDE [Suspect]
     Active Substance: PIRARUBICIN HYDROCHLORIDE
     Indication: Chemotherapy
     Dosage: DRUG STARTED AT 8:32, 70 MG, QD, DILUTED WITH 5% GLUCOSE (100 ML)
     Route: 041
     Dates: start: 20221214
  6. PIRARUBICIN HYDROCHLORIDE [Suspect]
     Active Substance: PIRARUBICIN HYDROCHLORIDE
     Indication: Breast cancer female

REACTIONS (2)
  - Myelosuppression [Recovering/Resolving]
  - White blood cell count decreased [Recovering/Resolving]

NARRATIVE: CASE EVENT DATE: 20221226
